FAERS Safety Report 24799070 (Version 2)
Quarter: 2025Q1

REPORT INFORMATION
  Report Type: Spontaneous
  Country: US (occurrence: None)
  Receive Date: 20250102
  Receipt Date: 20250129
  Transmission Date: 20250409
  Serious: No
  Sender: ENCUBE ETHICALS
  Company Number: US-Encube-001529

PATIENT
  Age: 8 Decade
  Sex: Female

DRUGS (1)
  1. TAVABOROLE [Suspect]
     Active Substance: TAVABOROLE
     Indication: Onychomycosis
     Dosage: SOLUTION
     Dates: start: 202409, end: 202412

REACTIONS (1)
  - Nail growth abnormal [Not Recovered/Not Resolved]

NARRATIVE: CASE EVENT DATE: 20240101
